FAERS Safety Report 12261452 (Version 2)
Quarter: 2016Q2

REPORT INFORMATION
  Report Type: Spontaneous
  Country: US (occurrence: US)
  Receive Date: 20160412
  Receipt Date: 20160614
  Transmission Date: 20160815
  Serious: No
  Sender: FDA-Public Use
  Company Number: US-B.I. PHARMACEUTICALS,INC./RIDGEFIELD-2016-BI-19501BP

PATIENT
  Sex: Female
  Weight: 77.11 kg

DRUGS (5)
  1. CLONAZAPAM [Concomitant]
     Active Substance: CLONAZEPAM
     Indication: PANIC ATTACK
  2. ZANTAC [Concomitant]
     Active Substance: RANITIDINE HYDROCHLORIDE
     Indication: GASTROOESOPHAGEAL REFLUX DISEASE
     Dosage: 150 MG
     Route: 048
     Dates: start: 20160312
  3. CLONAZAPAM [Concomitant]
     Active Substance: CLONAZEPAM
     Indication: SEIZURE
     Dosage: 1 MG
     Route: 048
  4. AMANTADINE [Concomitant]
     Active Substance: AMANTADINE
     Indication: DYSKINESIA
     Dosage: 200 MG
     Route: 048
  5. CATAPRES [Suspect]
     Active Substance: CLONIDINE HYDROCHLORIDE
     Indication: HYPERTENSION
     Dosage: 9 MG
     Route: 065
     Dates: start: 201412, end: 201512

REACTIONS (2)
  - Mania [Unknown]
  - Hypotension [Unknown]
